FAERS Safety Report 5071596-4 (Version None)
Quarter: 2006Q3

REPORT INFORMATION
  Report Type: 
  Country: None (occurrence: None)
  Receive Date: 20060803
  Receipt Date: 20060803
  Transmission Date: 20061208
  Serious: Yes (Other)
  Sender: FDA-Public Use
  Company Number: None

PATIENT
  Sex: Female
  Weight: 49.8957 kg

DRUGS (2)
  1. DEPO-PROVERA [Suspect]
     Indication: CONTRACEPTION
     Dosage: 1 INJECTION  ONCE EVERY 3 MONTH   2 PERIODS OF TIME
  2. KARIVA [Suspect]
     Dosage: 28  1 PILL/DAY   EARLY MAY

REACTIONS (4)
  - ALOPECIA [None]
  - DEPRESSION [None]
  - LOSS OF LIBIDO [None]
  - WEIGHT INCREASED [None]
